FAERS Safety Report 23985821 (Version 1)
Quarter: 2024Q2

REPORT INFORMATION
  Report Type: Report from Study
  Country: US (occurrence: US)
  Receive Date: 20240618
  Receipt Date: 20240618
  Transmission Date: 20240716
  Serious: Yes (Death)
  Sender: FDA-Public Use
  Company Number: US-PFIZER INC-202400194323

PATIENT
  Age: 77 Year
  Sex: Female

DRUGS (2)
  1. BRAFTOVI [Suspect]
     Active Substance: ENCORAFENIB
     Dosage: 450 MG BY MOUTH ONCE DAILY
     Route: 048
     Dates: start: 20240328, end: 20240614
  2. MEKTOVI [Suspect]
     Active Substance: BINIMETINIB
     Dosage: 45MG BY MOUTH EVERY 12 HOURS
     Route: 048
     Dates: start: 20240328, end: 20240614

REACTIONS (1)
  - Death [Fatal]
